FAERS Safety Report 9722369 (Version 2)
Quarter: 2014Q1

REPORT INFORMATION
  Report Type: Spontaneous
  Country: US (occurrence: US)
  Receive Date: 20131202
  Receipt Date: 20140130
  Transmission Date: 20141002
  Serious: Yes (Other)
  Sender: FDA-Public Use
  Company Number: US-JNJFOC-20131114672

PATIENT
  Age: 80 Year
  Sex: Female
  Weight: 79.83 kg

DRUGS (8)
  1. XARELTO [Suspect]
     Indication: DEEP VEIN THROMBOSIS
     Route: 048
     Dates: start: 201308, end: 201311
  2. LOPRESSOR [Concomitant]
     Route: 065
  3. LISINOPRIL [Concomitant]
     Route: 065
  4. ARICEPT [Concomitant]
     Route: 065
  5. CELEXA [Concomitant]
     Route: 065
  6. SEROQUEL [Concomitant]
     Route: 065
  7. NAMENDA [Concomitant]
     Route: 065
  8. SYNTHROID [Concomitant]
     Route: 065

REACTIONS (2)
  - Deep vein thrombosis [Unknown]
  - Treatment failure [Unknown]
